FAERS Safety Report 20810524 (Version 1)
Quarter: 2022Q2

REPORT INFORMATION
  Report Type: Spontaneous
  Country: US (occurrence: US)
  Receive Date: 20220510
  Receipt Date: 20220510
  Transmission Date: 20220720
  Serious: No
  Sender: FDA-Public Use
  Company Number: US-GLAUKOS-AVE-2021-0222-AE

PATIENT

DRUGS (3)
  1. PHOTREXA VISCOUS [Suspect]
     Active Substance: RIBOFLAVIN 5^-PHOSPHATE SODIUM
     Indication: Keratoconus
     Dosage: 1 DROP EVERY 2 MINUTES FOR 15 MINUTES
     Route: 047
     Dates: start: 20210611, end: 20210611
  2. PHOTREXA [Suspect]
     Active Substance: RIBOFLAVIN 5^-PHOSPHATE SODIUM
     Indication: Keratoconus
     Dosage: 1 DROP EVERY 2 MINUTES FOR 30 MINUTES
     Route: 047
     Dates: start: 20210611, end: 20210611
  3. DEVICE [Suspect]
     Active Substance: DEVICE
     Indication: Keratoconus
     Route: 047
     Dates: start: 20210611, end: 20210611

REACTIONS (4)
  - Therapy cessation [Unknown]
  - Device issue [Unknown]
  - Incorrect product administration duration [Unknown]
  - No adverse event [Unknown]

NARRATIVE: CASE EVENT DATE: 20210611
